FAERS Safety Report 8746084 (Version 2)
Quarter: 2012Q4

REPORT INFORMATION
  Report Type: 
  Country: US (occurrence: US)
  Receive Date: 20120827
  Receipt Date: 20120910
  Transmission Date: 20130627
  Serious: Yes (Other)
  Sender: FDA-Public Use
  Company Number: US-JNJFOC-20120810445

PATIENT
  Age: 73 Year
  Sex: Female
  Weight: 96.16 kg

DRUGS (17)
  1. NUCYNTA [Suspect]
     Indication: PAIN
     Dosage: 4 tablets daily
     Route: 048
     Dates: start: 20120818
  2. XANAX [Concomitant]
     Indication: ANXIETY
     Route: 065
  3. HCTZ [Concomitant]
     Indication: BLOOD PRESSURE
     Dosage: daily
     Route: 048
  4. PRAVASTATIN [Concomitant]
     Indication: BLOOD CHOLESTEROL
     Route: 048
  5. METOPROLOL XL [Concomitant]
     Indication: BLOOD PRESSURE
     Dosage: daily
     Route: 048
  6. ADVAIR [Concomitant]
     Indication: WHEEZING
     Route: 065
     Dates: start: 2008
  7. PRILOSEC [Concomitant]
     Indication: HIATUS HERNIA
     Dosage: twice daily
     Route: 048
  8. PRILOSEC [Concomitant]
     Indication: ULCER
     Dosage: twice daily
     Route: 048
  9. ASPIRIN [Concomitant]
     Indication: CARDIAC DISORDER
     Dosage: daily
     Route: 048
     Dates: start: 2002
  10. LASIX [Concomitant]
     Indication: OEDEMA PERIPHERAL
     Route: 065
  11. VITAMINS NOS [Concomitant]
     Route: 065
  12. OCUVITE NOS [Concomitant]
     Route: 065
  13. CINNAMON [Concomitant]
     Route: 065
  14. UNKNOWN MEDICATION [Concomitant]
     Route: 065
  15. CELEBREX [Concomitant]
     Route: 065
  16. CALCIUM [Concomitant]
     Route: 065
  17. TURMERIC [Concomitant]
     Indication: MUSCLE SPASMS
     Route: 065

REACTIONS (5)
  - Depression [Not Recovered/Not Resolved]
  - Withdrawal syndrome [Not Recovered/Not Resolved]
  - Pain [Not Recovered/Not Resolved]
  - Hot flush [Not Recovered/Not Resolved]
  - Product quality issue [Unknown]
